FAERS Safety Report 7889101-3 (Version None)
Quarter: 2011Q4

REPORT INFORMATION
  Report Type: 
  Country: None (occurrence: None)
  Receive Date: 20111103
  Receipt Date: 20111018
  Transmission Date: 20120403
  Serious: Yes (Hospitalization)
  Sender: FDA-Public Use
  Company Number: US-BAYER-2011-031861

PATIENT
  Age: 17 Year
  Sex: Female
  Weight: 70 kg

DRUGS (3)
  1. ALBUTEROL [Concomitant]
     Dosage: UNK UNK, PRN
     Dates: start: 20010101
  2. YAZ [Suspect]
     Dosage: UNK
     Dates: start: 20080901, end: 20090201
  3. SYNTHROID [Concomitant]
     Indication: HYPOTHYROIDISM
     Dosage: 150 U, QD
     Route: 048
     Dates: start: 20010101, end: 20110101

REACTIONS (5)
  - EMOTIONAL DISTRESS [None]
  - PULMONARY EMBOLISM [None]
  - THROMBOSIS [None]
  - INJURY [None]
  - PAIN [None]
